FAERS Safety Report 6032149-4 (Version None)
Quarter: 2009Q1

REPORT INFORMATION
  Report Type: 
  Country: None (occurrence: None)
  Receive Date: 20090107
  Receipt Date: 20081209
  Transmission Date: 20090719
  Serious: Yes (Hospitalization)
  Sender: FDA-Public Use
  Company Number: 200832682GPV

PATIENT
  Age: 52 Year
  Sex: Male

DRUGS (9)
  1. CAMPATH [Suspect]
     Indication: CHRONIC LYMPHOCYTIC LEUKAEMIA
     Dosage: 30 MG SUBCUTANEOUS
     Route: 058
     Dates: start: 20081006, end: 20081008
  2. FLUDARA [Suspect]
     Indication: CHRONIC LYMPHOCYTIC LEUKAEMIA
     Dosage: 40 MG ORAL
     Route: 048
     Dates: start: 20081006, end: 20081007
  3. FLUDARA [Suspect]
     Indication: CHRONIC LYMPHOCYTIC LEUKAEMIA
     Dosage: 40 MG ORAL
     Route: 048
     Dates: start: 20081009, end: 20081009
  4. CYCLOPHOSPHAMIDE [Suspect]
     Indication: CHRONIC LYMPHOCYTIC LEUKAEMIA
     Dosage: 250 MG ORAL
     Route: 048
     Dates: start: 20081006, end: 20081007
  5. CYCLOPHOSPHAMIDE [Suspect]
     Indication: CHRONIC LYMPHOCYTIC LEUKAEMIA
     Dosage: 250 MG ORAL
     Route: 048
     Dates: start: 20081009, end: 20081009
  6. BACTRIM [Concomitant]
  7. VALACYCLOVIR HCL [Concomitant]
  8. ALLOPURINOL [Concomitant]
  9. PRIMPERAN TAB [Concomitant]

REACTIONS (9)
  - CHILLS [None]
  - CYTOKINE RELEASE SYNDROME [None]
  - HYPERSENSITIVITY [None]
  - INJECTION SITE RASH [None]
  - MALAISE [None]
  - NAUSEA [None]
  - ORTHOSTATIC HYPOTENSION [None]
  - PYREXIA [None]
  - VOMITING [None]
